FAERS Safety Report 8861691 (Version 1)
Quarter: 2012Q4

REPORT INFORMATION
  Report Type: 
  Country: US (occurrence: None)
  Receive Date: 20121025
  Receipt Date: 20121025
  Transmission Date: 20130627
  Serious: Yes (Hospitalization)
  Sender: FDA-Public Use
  Company Number: None

PATIENT
  Sex: Female
  Weight: 127 kg

DRUGS (4)
  1. METHOTREXATE [Suspect]
  2. PROCARBAZINE [Suspect]
  3. RITUXIMAB [Suspect]
  4. VINCRISTINE SULFATE [Suspect]

REACTIONS (8)
  - Fall [None]
  - Limb injury [None]
  - Balance disorder [None]
  - Febrile neutropenia [None]
  - Urosepsis [None]
  - Delusion [None]
  - Hallucination [None]
  - Urinary tract infection [None]
